FAERS Safety Report 5742938-9 (Version None)
Quarter: 2008Q2

REPORT INFORMATION
  Report Type: 
  Country: None (occurrence: None)
  Receive Date: 20080515
  Receipt Date: 20080515
  Transmission Date: 20081010
  Serious: No
  Sender: FDA-Public Use
  Company Number: None

PATIENT
  Sex: Female
  Weight: 53.978 kg

DRUGS (2)
  1. CREST PRO-HEALTH  OTC MOUTHWASH  PROCTER + GAMBLE [Suspect]
     Indication: DENTAL PLAQUE
     Dates: start: 20080201, end: 20080509
  2. CREST PRO-HEALTH  OTC MOUTHWASH  PROCTER + GAMBLE [Suspect]
     Indication: PROPHYLAXIS
     Dates: start: 20080201, end: 20080509

REACTIONS (2)
  - PAIN [None]
  - TOOTH DISCOLOURATION [None]
